FAERS Safety Report 7629840-2 (Version None)
Quarter: 2011Q3

REPORT INFORMATION
  Report Type: 
  Country: None (occurrence: None)
  Receive Date: 20110722
  Receipt Date: 20110712
  Transmission Date: 20111222
  Serious: Yes (Death, Other)
  Sender: FDA-Public Use
  Company Number: CA-JNJFOC-20100602845

PATIENT
  Sex: Female
  Weight: 49 kg

DRUGS (2)
  1. REMICADE [Suspect]
     Indication: ANKYLOSING SPONDYLITIS
     Dosage: 65 INFUSIONS
     Route: 042
     Dates: start: 20070128, end: 20100304
  2. REMICADE [Suspect]
     Dosage: 6 INFUSIONS
     Route: 042
     Dates: start: 20060502, end: 20061129

REACTIONS (1)
  - LUNG NEOPLASM MALIGNANT [None]
